FAERS Safety Report 8231928-2 (Version None)
Quarter: 2012Q1

REPORT INFORMATION
  Report Type: 
  Country: None (occurrence: None)
  Receive Date: 20120323
  Receipt Date: 20120308
  Transmission Date: 20120608
  Serious: Yes (Death, Life-Threatening, Hospitalization)
  Sender: FDA-Public Use
  Company Number: FR-ROCHE-1039011

PATIENT
  Sex: Female

DRUGS (2)
  1. VEMURAFENIB [Suspect]
     Indication: MALIGNANT MELANOMA
     Route: 048
     Dates: start: 20120111, end: 20120209
  2. FLUCONAZOLE [Suspect]
     Indication: FUNGAL INFECTION
     Dates: start: 20120111, end: 20120209

REACTIONS (4)
  - CYTOLYTIC HEPATITIS [None]
  - CHOLESTASIS [None]
  - HEPATIC FAILURE [None]
  - HEPATITIS FULMINANT [None]
